FAERS Safety Report 9013063 (Version 2)
Quarter: 2013Q1

REPORT INFORMATION
  Report Type: Spontaneous
  Country: JP (occurrence: JP)
  Receive Date: 20130114
  Receipt Date: 20130117
  Transmission Date: 20140127
  Serious: Yes (Other)
  Sender: FDA-Public Use
  Company Number: JP-PFIZER INC-2013002189

PATIENT
  Age: 6 Decade
  Sex: Female

DRUGS (1)
  1. SEIBULE [Suspect]
     Dosage: UNK
     Route: 048

REACTIONS (1)
  - Haemangioma [Not Recovered/Not Resolved]
